FAERS Safety Report 9911417 (Version 2)
Quarter: 2014Q1

REPORT INFORMATION
  Report Type: Report from Study
  Country: CA (occurrence: CA)
  Receive Date: 20140219
  Receipt Date: 20140219
  Transmission Date: 20141002
  Serious: Yes (Other)
  Sender: FDA-Public Use
  Company Number: CA-ABBVIE-14P-028-1202383-00

PATIENT
  Sex: Female
  Weight: 99.88 kg

DRUGS (4)
  1. HUMIRA [Suspect]
     Indication: RHEUMATOID ARTHRITIS
     Route: 058
     Dates: start: 20120827, end: 20140104
  2. HUMIRA [Suspect]
     Route: 058
     Dates: start: 20140213
  3. METHOTREXATE [Concomitant]
     Indication: RHEUMATOID ARTHRITIS
  4. MEDICATION FOR BLOOD PRESSURE (NAME UNKNOWN) [Concomitant]
     Indication: HYPERTENSION

REACTIONS (1)
  - Osteoarthritis [Not Recovered/Not Resolved]
